FAERS Safety Report 20118917 (Version 1)
Quarter: 2021Q4

REPORT INFORMATION
  Report Type: Spontaneous
  Country: CN (occurrence: CN)
  Receive Date: 20211126
  Receipt Date: 20211126
  Transmission Date: 20220303
  Serious: Yes (Other)
  Sender: FDA-Public Use
  Company Number: CN-009507513-2111CHN006950

PATIENT
  Age: 63 Year
  Sex: Female
  Weight: 50 kg

DRUGS (3)
  1. CILASTATIN SODIUM\IMIPENEM [Suspect]
     Active Substance: CILASTATIN SODIUM\IMIPENEM
     Indication: Febrile infection
     Dosage: THE FIRST DOSE WAS 1 G, ONCE
     Route: 041
     Dates: start: 20211027, end: 20211027
  2. CILASTATIN SODIUM\IMIPENEM [Suspect]
     Active Substance: CILASTATIN SODIUM\IMIPENEM
     Dosage: DOSE: 0.5 G, FREQUENCY: EVERY 8 HOURS (Q8H)
     Route: 041
     Dates: start: 20211027, end: 20211102
  3. SODIUM CHLORIDE [Concomitant]
     Active Substance: SODIUM CHLORIDE
     Dosage: 100 ML, Q8H
     Route: 041
     Dates: start: 20211027

REACTIONS (5)
  - Epilepsy [Recovered/Resolved]
  - Uraemic encephalopathy [Unknown]
  - Cerebrovascular accident [Unknown]
  - Nervous system disorder [Recovered/Resolved]
  - Product preparation issue [Unknown]

NARRATIVE: CASE EVENT DATE: 20211027
